FAERS Safety Report 4286264-6 (Version None)
Quarter: 2004Q1

REPORT INFORMATION
  Report Type: 
  Country: None (occurrence: None)
  Receive Date: 20040205
  Receipt Date: 20040205
  Transmission Date: 20041129
  Serious: Yes (Hospitalization)
  Sender: FDA-Public Use
  Company Number: None

PATIENT
  Age: 67 Year
  Sex: Male
  Weight: 80.9 kg

DRUGS (6)
  1. PHENYTOIN [Suspect]
     Indication: CONVULSION
     Dosage: 230 G Q HS
  2. CLONAZEPAM [Concomitant]
  3. FA [Concomitant]
  4. LEVOTHYROXINE SODIUM [Concomitant]
  5. OLANZAPINE [Concomitant]
  6. TOPERAMATE [Concomitant]

REACTIONS (3)
  - AGITATION [None]
  - CONVULSION [None]
  - DEPRESSED LEVEL OF CONSCIOUSNESS [None]
